FAERS Safety Report 10067744 (Version 1)
Quarter: 2014Q2

REPORT INFORMATION
  Report Type: Spontaneous
  Country: US (occurrence: US)
  Receive Date: 20140409
  Receipt Date: 20140409
  Transmission Date: 20141212
  Serious: Yes (Other)
  Sender: FDA-Public Use
  Company Number: US-AMGEN INC.-USASP2014024685

PATIENT
  Age: 59 Year
  Sex: Male
  Weight: 145.13 kg

DRUGS (7)
  1. ENBREL [Suspect]
     Indication: PRODUCT USED FOR UNKNOWN INDICATION
     Dosage: 50 MG, QWK
     Route: 058
     Dates: end: 201401
  2. LAXATIVE [Concomitant]
     Dosage: 8.6 MG, UNK
  3. HYDROCODONE W/APAP                 /00607101/ [Concomitant]
     Dosage: 10-325MG, UNK
  4. AMLODIPINE BENAZEPRIL [Concomitant]
     Dosage: 10-20 MG, UNK
  5. XARELTO [Concomitant]
     Dosage: 10 MG, UNK
  6. FLUOXETINE [Concomitant]
     Dosage: 20 MG, UNK
  7. OSTEO BI-FLEX                      /01431201/ [Concomitant]
     Dosage: UNK

REACTIONS (1)
  - Hip arthroplasty [Unknown]
